FAERS Safety Report 4344539-6 (Version None)
Quarter: 2004Q2

REPORT INFORMATION
  Report Type: 
  Country: None (occurrence: None)
  Receive Date: 20040422
  Receipt Date: 20021014
  Transmission Date: 20050107
  Serious: Yes (Hospitalization, Disabling)
  Sender: FDA-Public Use
  Company Number: US-MERCK-0210USA01514

PATIENT
  Age: 58 Year
  Sex: Male
  Weight: 105 kg

DRUGS (7)
  1. [THERAPY UNSPECIFIED] [Concomitant]
     Indication: ANTIPLATELET THERAPY
     Route: 065
     Dates: start: 20000218, end: 20040305
  2. HERBS (UNSPECIFIED) [Concomitant]
     Route: 065
     Dates: start: 20010321, end: 20030708
  3. PRILOSEC [Concomitant]
     Route: 065
  4. VIOXX [Suspect]
     Indication: OSTEOARTHRITIS
     Route: 048
     Dates: start: 20000101, end: 20000701
  5. VIOXX [Suspect]
     Route: 048
     Dates: start: 20000101
  6. VIOXX [Suspect]
     Indication: DIABETES MELLITUS
     Route: 048
     Dates: start: 20000101, end: 20000701
  7. VIOXX [Suspect]
     Route: 048
     Dates: start: 20000101

REACTIONS (45)
  - ABDOMINAL PAIN [None]
  - ABDOMINAL PAIN LOWER [None]
  - ARTHRALGIA [None]
  - BALANCE DISORDER [None]
  - BLOOD GLUCOSE INCREASED [None]
  - BURNING SENSATION [None]
  - BURSITIS [None]
  - CEREBROVASCULAR ACCIDENT [None]
  - COMPUTERISED TOMOGRAM ABNORMAL [None]
  - DIZZINESS [None]
  - DYSPHAGIA [None]
  - DYSPNOEA [None]
  - EMOTIONAL DISTRESS [None]
  - EXOSTOSIS [None]
  - FALL [None]
  - FATIGUE [None]
  - FEMORAL ARTERY OCCLUSION [None]
  - GAIT DISTURBANCE [None]
  - GASTROOESOPHAGEAL REFLUX DISEASE [None]
  - HAEMORRHOIDS [None]
  - HYPERTENSION [None]
  - HYPOAESTHESIA [None]
  - IMPAIRED WORK ABILITY [None]
  - INJURY [None]
  - JOINT SPRAIN [None]
  - JOINT SWELLING [None]
  - LACUNAR INFARCTION [None]
  - LIGAMENT INJURY [None]
  - MEMORY IMPAIRMENT [None]
  - MENISCUS LESION [None]
  - NAUSEA [None]
  - OESOPHAGITIS [None]
  - OSTEOARTHRITIS [None]
  - PAIN IN EXTREMITY [None]
  - PARAESTHESIA [None]
  - PERIPHERAL VASCULAR DISORDER [None]
  - PERSONALITY DISORDER [None]
  - QRS AXIS ABNORMAL [None]
  - RECTAL POLYP [None]
  - SYNOVITIS [None]
  - TACHYCARDIA [None]
  - TRANSIENT ISCHAEMIC ATTACK [None]
  - TREMOR [None]
  - VASCULAR CALCIFICATION [None]
  - WHEEZING [None]
